FAERS Safety Report 9881480 (Version 6)
Quarter: 2021Q1

REPORT INFORMATION
  Report Type: Report from Study
  Country: DE (occurrence: DE)
  Receive Date: 20140207
  Receipt Date: 20210322
  Transmission Date: 20210420
  Serious: Yes (Hospitalization)
  Sender: FDA-Public Use
  Company Number: DE-ROCHE-1341375

PATIENT
  Age: 66 Year
  Sex: Male

DRUGS (18)
  1. LOSARTAN. [Concomitant]
     Active Substance: LOSARTAN
     Indication: HYPERTENSION
     Dosage: LOSARTAN 50 1 A
     Dates: start: 20130304, end: 20140128
  2. NOVANOX [Concomitant]
     Indication: INSOMNIA
     Dates: start: 20140130, end: 20140130
  3. ZOLPIDEM [Concomitant]
     Active Substance: ZOLPIDEM TARTRATE
     Indication: INSOMNIA
     Dates: start: 20140131, end: 20140202
  4. AUGMENTAN [Concomitant]
     Active Substance: AMOXICILLIN\CLAVULANATE POTASSIUM
     Indication: URINARY TRACT INFECTION
     Dates: start: 20140128, end: 20140131
  5. CYCLOPHOSPHAMIDE. [Suspect]
     Active Substance: CYCLOPHOSPHAMIDE
     Indication: NON-HODGKIN^S LYMPHOMA UNSPECIFIED HISTOLOGY INDOLENT
     Dosage: MOST RECENT DOSE PRIOR TO SAE ON 08/MAY/2013, DOSE: 1470 MG
     Route: 042
     Dates: start: 20130123
  6. AUGMENTAN [Concomitant]
     Active Substance: AMOXICILLIN\CLAVULANATE POTASSIUM
     Indication: URINARY TRACT INFECTION
     Dates: start: 20140128, end: 20140131
  7. KALINOR [Concomitant]
     Indication: HYPOKALAEMIA
     Dates: start: 20140129, end: 20140131
  8. METFORMIN [Concomitant]
     Active Substance: METFORMIN HYDROCHLORIDE
     Dates: start: 20140131
  9. TAZOBAC [Concomitant]
     Active Substance: PIPERACILLIN SODIUM\TAZOBACTAM SODIUM
     Indication: URINARY TRACT INFECTION
  10. OBINUTUZUMAB. [Suspect]
     Active Substance: OBINUTUZUMAB
     Indication: NON-HODGKIN^S LYMPHOMA UNSPECIFIED HISTOLOGY INDOLENT
     Dosage: MOST RECENT DOSE PRIOR TO SAE ON 09/DEC/2013, VOLUME OF LAST DOSE TAKEN: 250 ML, DOSE CONCENTRATION
     Route: 042
     Dates: start: 20130122
  11. LEMOCIN [Concomitant]
     Indication: PHARYNGITIS
     Dates: start: 20140128, end: 20140203
  12. AMPHO MORONAL [Concomitant]
     Active Substance: AMPHOTERICIN B
     Indication: PHARYNGITIS
     Dates: start: 20140128, end: 20140203
  13. VINCRISTINE [Suspect]
     Active Substance: VINCRISTINE
     Indication: NON-HODGKIN^S LYMPHOMA UNSPECIFIED HISTOLOGY INDOLENT
     Dosage: MOST RECENT DOSE PRIOR TO SAE ON 08/MAY/2013, DOSE: 2 MG
     Dates: start: 20130123
  14. PREDNISOLONE. [Suspect]
     Active Substance: PREDNISOLONE
     Indication: NON-HODGKIN^S LYMPHOMA UNSPECIFIED HISTOLOGY INDOLENT
     Dosage: MOST RECENT DOSE PRIOR TO SAE ON 12/MAY/2013, DOSE: 100 MG?SUBSEQUENT DOSES OF PREDNISOLONE WERE REC
     Route: 048
     Dates: start: 20130123
  15. BISOPROLOL PLUS [Concomitant]
     Active Substance: BISOPROLOL FUMARATE\HYDROCHLOROTHIAZIDE
     Indication: HYPERTENSION
     Dosage: BISOPROLOL PLUS 5/12.5
     Dates: end: 20140129
  16. ROXIDURA [Concomitant]
     Indication: PHARYNGITIS
     Dates: start: 20140127, end: 20140128
  17. DOXORUBICIN [Suspect]
     Active Substance: DOXORUBICIN
     Indication: NON-HODGKIN^S LYMPHOMA UNSPECIFIED HISTOLOGY INDOLENT
     Dosage: MOST RECENT DOSE PRIOR TO SAE ON 08/MAY/2013, DOSE: 98 MG
     Route: 042
     Dates: start: 20130123
  18. METFORMIN [Concomitant]
     Active Substance: METFORMIN HYDROCHLORIDE
     Indication: DIABETES MELLITUS
     Dates: end: 20140129

REACTIONS (1)
  - Febrile neutropenia [Recovered/Resolved]

NARRATIVE: CASE EVENT DATE: 20140127
